FAERS Safety Report 5252472-0 (Version None)
Quarter: 2007Q1

REPORT INFORMATION
  Report Type: 
  Country: None (occurrence: None)
  Receive Date: 20070301
  Receipt Date: 20061127
  Transmission Date: 20070707
  Serious: No
  Sender: FDA-Public Use
  Company Number: US-BRISTOL-MYERS SQUIBB COMPANY-13589064

PATIENT
  Sex: Female
  Weight: 113 kg

DRUGS (5)
  1. ERBITUX [Suspect]
     Indication: COLON CANCER METASTATIC
     Route: 042
  2. IRINOTECAN HCL [Suspect]
     Indication: COLON CANCER METASTATIC
  3. NORVASC [Concomitant]
  4. DIOVAN [Concomitant]
  5. BENADRYL [Concomitant]
     Indication: PREMEDICATION
     Route: 042

REACTIONS (1)
  - SKIN DISORDER [None]
